FAERS Safety Report 5019885-3 (Version None)
Quarter: 2006Q2

REPORT INFORMATION
  Report Type: 
  Country: None (occurrence: None)
  Receive Date: 20060607
  Receipt Date: 20060529
  Transmission Date: 20061013
  Serious: Yes (Hospitalization)
  Sender: FDA-Public Use
  Company Number: PHBS2006US07880

PATIENT
  Age: 88 Year
  Sex: Female
  Weight: 79.4 kg

DRUGS (12)
  1. LISINOPRIL [Suspect]
     Dosage: 10 MG, QD
     Route: 048
  2. LISINOPRIL [Suspect]
     Dosage: 40 MG, QD
     Route: 048
  3. FEXOFENADINE [Suspect]
     Dosage: 180 MG, QD
     Route: 048
  4. AMITRIPTYLINE HCL [Suspect]
     Dosage: 25 MG, QHS
     Route: 048
  5. MECLIZINE [Suspect]
     Dosage: 12.5 MG, QID
     Route: 048
  6. PRIMIDONE [Suspect]
     Dosage: 50 MG, QHS
     Route: 048
  7. DOCUSATE [Suspect]
     Dosage: 100 MG, BID
     Route: 048
  8. WARFARIN SODIUM [Suspect]
     Dosage: 2.5 MG, QD
     Route: 048
  9. ASPIRIN [Suspect]
     Dosage: 81 MG, QD
     Route: 048
  10. DIGOXIN [Suspect]
     Dosage: 0.125 MG, QW4
     Route: 048
  11. AMLODIPINE [Concomitant]
     Dosage: 10 MG, QD
  12. METOPROLOL [Suspect]
     Dosage: 100 MG, QD
     Route: 048

REACTIONS (13)
  - ATRIAL FIBRILLATION [None]
  - CONTUSION [None]
  - DIPLOPIA [None]
  - EXCORIATION [None]
  - FALL [None]
  - HAEMATOMA [None]
  - HEADACHE [None]
  - HEART RATE INCREASED [None]
  - HYPERTENSION [None]
  - INTERNATIONAL NORMALISED RATIO INCREASED [None]
  - JOINT INJURY [None]
  - OEDEMA PERIPHERAL [None]
  - TREMOR [None]
